FAERS Safety Report 12716343 (Version 1)
Quarter: 2016Q3

REPORT INFORMATION
  Report Type: Spontaneous
  Country: FR (occurrence: FR)
  Receive Date: 20160906
  Receipt Date: 20160906
  Transmission Date: 20161109
  Serious: Yes (Other)
  Sender: FDA-Public Use
  Company Number: PHHY2016FR121225

PATIENT
  Age: 2 Year
  Sex: Male
  Weight: 16.1 kg

DRUGS (3)
  1. SABRIL [Concomitant]
     Active Substance: VIGABATRIN
     Indication: PRODUCT USED FOR UNKNOWN INDICATION
     Dosage: 250 MG, BID
     Route: 065
     Dates: start: 201506
  2. TEGRETOL [Suspect]
     Active Substance: CARBAMAZEPINE
     Dosage: 8 ML MORNING AND 10 ML EVENING
     Route: 048
     Dates: start: 201605
  3. TEGRETOL [Suspect]
     Active Substance: CARBAMAZEPINE
     Indication: PARTIAL SEIZURES
     Dosage: 5 ML MORNING AND 7.5 ML EVENING
     Route: 048
     Dates: start: 201506

REACTIONS (3)
  - Somnolence [Recovered/Resolved]
  - Gait disturbance [Recovered/Resolved]
  - Speech disorder [Recovered/Resolved]

NARRATIVE: CASE EVENT DATE: 201605
